FAERS Safety Report 21123921 (Version 2)
Quarter: 2022Q4

REPORT INFORMATION
  Report Type: Spontaneous
  Country: IT (occurrence: IT)
  Receive Date: 20220725
  Receipt Date: 20221122
  Transmission Date: 20230113
  Serious: Yes (Other)
  Sender: FDA-Public Use
  Company Number: IT-SUN PHARMACEUTICAL INDUSTRIES LTD-2022R1-345736

PATIENT
  Age: 70 Year
  Sex: Female

DRUGS (3)
  1. BISOPROLOL [Suspect]
     Active Substance: BISOPROLOL
     Indication: Angina unstable
     Dosage: 5 MILLIGRAM, DAILY
     Route: 065
  2. ISOSORBIDE MONONITRATE [Suspect]
     Active Substance: ISOSORBIDE MONONITRATE
     Indication: Angina unstable
     Dosage: 80 MILLIGRAM, BID
     Route: 065
  3. RANOLAZINE [Suspect]
     Active Substance: RANOLAZINE
     Indication: Angina unstable
     Dosage: 375 MILLIGRAM, BID
     Route: 065

REACTIONS (1)
  - Drug ineffective [Unknown]
